FAERS Safety Report 26071729 (Version 1)
Quarter: 2025Q4

REPORT INFORMATION
  Report Type: Spontaneous
  Country: US (occurrence: US)
  Receive Date: 20251120
  Receipt Date: 20251120
  Transmission Date: 20260118
  Serious: No
  Sender: INSUD PHARMA
  Company Number: US-INSUD PHARMA-2511US09407

PATIENT

DRUGS (2)
  1. ENILLORING [Suspect]
     Active Substance: ETHINYL ESTRADIOL\ETONOGESTREL
     Indication: Contraception
     Dosage: THREE WEEKS CONSECUTIVELY
     Route: 067
     Dates: start: 20251031, end: 20251109
  2. ENILLORING [Suspect]
     Active Substance: ETHINYL ESTRADIOL\ETONOGESTREL
     Indication: Polycystic ovarian syndrome
     Dosage: THREE WEEKS CONSECUTIVELY
     Route: 067
     Dates: start: 2023, end: 2025

REACTIONS (6)
  - Abdominal pain [Recovered/Resolved]
  - Intermenstrual bleeding [Unknown]
  - Product use issue [Unknown]
  - Product use in unapproved indication [Unknown]
  - Poor quality device used [Unknown]
  - Device physical property issue [Unknown]

NARRATIVE: CASE EVENT DATE: 20251105
